FAERS Safety Report 15243829 (Version 1)
Quarter: 2018Q3

REPORT INFORMATION
  Report Type: Spontaneous
  Country: US (occurrence: US)
  Receive Date: 20180806
  Receipt Date: 20180806
  Transmission Date: 20181010
  Serious: No
  Sender: FDA-Public Use
  Company Number: US-SA-2018SA210521

PATIENT
  Age: 56 Year
  Sex: Female

DRUGS (12)
  1. VITAMIN D [Concomitant]
     Active Substance: CHOLECALCIFEROL
  2. CLONIDINE. [Concomitant]
     Active Substance: CLONIDINE
  3. MYRBETRIQ [Concomitant]
     Active Substance: MIRABEGRON
  4. VICODIN [Concomitant]
     Active Substance: ACETAMINOPHEN\HYDROCODONE BITARTRATE
  5. MORPHINE SULFATE. [Concomitant]
     Active Substance: MORPHINE SULFATE
  6. POTASSIUM [Concomitant]
     Active Substance: POTASSIUM
  7. LISINOPRIL. [Concomitant]
     Active Substance: LISINOPRIL
  8. AUBAGIO [Suspect]
     Active Substance: TERIFLUNOMIDE
     Indication: MULTIPLE SCLEROSIS
     Dosage: 14 MG, QD
     Route: 048
     Dates: start: 20170317
  9. LORATADINE. [Concomitant]
     Active Substance: LORATADINE
  10. FUROSEMIDE. [Concomitant]
     Active Substance: FUROSEMIDE
  11. TRAZODONE [Concomitant]
     Active Substance: TRAZODONE HYDROCHLORIDE
  12. VALIUM [Concomitant]
     Active Substance: DIAZEPAM

REACTIONS (6)
  - Gait disturbance [Unknown]
  - Quality of life decreased [Unknown]
  - Asthenia [Unknown]
  - Memory impairment [Unknown]
  - Fatigue [Unknown]
  - Pain [Unknown]

NARRATIVE: CASE EVENT DATE: 20180730
